FAERS Safety Report 9450242 (Version 2)
Quarter: 2013Q4

REPORT INFORMATION
  Report Type: Spontaneous
  Country: GB (occurrence: GB)
  Receive Date: 20130809
  Receipt Date: 20131108
  Transmission Date: 20140711
  Serious: Yes (Other)
  Sender: FDA-Public Use
  Company Number: GB-JNJFOC-20130802557

PATIENT
  Sex: Female

DRUGS (1)
  1. XARELTO [Suspect]
     Indication: THROMBOSIS PROPHYLAXIS
     Route: 048
     Dates: start: 20130715, end: 20130718

REACTIONS (15)
  - Arthralgia [Unknown]
  - Abdominal pain [Unknown]
  - Haemorrhage [Unknown]
  - Pallor [Unknown]
  - Dyspnoea [Unknown]
  - Malaise [Unknown]
  - Dizziness [Unknown]
  - Pyrexia [Unknown]
  - Palpitations [Unknown]
  - Hyperhidrosis [Unknown]
  - Rash macular [Unknown]
  - Haemorrhage [Unknown]
  - Chromaturia [Unknown]
  - Feeling cold [Unknown]
  - Paraesthesia [Unknown]
